FAERS Safety Report 24327280 (Version 2)
Quarter: 2024Q4

REPORT INFORMATION
  Report Type: Spontaneous
  Country: CA (occurrence: CA)
  Receive Date: 20240917
  Receipt Date: 20241009
  Transmission Date: 20250115
  Serious: Yes (Death)
  Sender: PFIZER
  Company Number: CA-PFIZER INC-202101063459

PATIENT
  Age: 56 Year
  Sex: Male

DRUGS (9)
  1. RAPAMUNE [Suspect]
     Active Substance: SIROLIMUS
     Indication: Angiosarcoma
     Dosage: 5 MG, 1X/DAY
     Route: 048
     Dates: start: 20210819
  2. RAPAMUNE [Suspect]
     Active Substance: SIROLIMUS
     Dosage: 6 MG, 1X/DAY
     Route: 048
     Dates: start: 20210905
  3. ELIQUIS [Concomitant]
     Active Substance: APIXABAN
     Indication: Thrombosis
     Dosage: TAKE 2 TABLETS (10 MG) BY MOUTH 2 TIMES A DAY FOR 7 DAYS
     Route: 048
     Dates: start: 202209
  4. SYMBICORT [Concomitant]
     Active Substance: BUDESONIDE\FORMOTEROL FUMARATE DIHYDRATE
     Dosage: AS NEEDED (INHALE IF NEEDED)
  5. DEXTROMETHORPHAN HYDROBROMIDE [Concomitant]
     Active Substance: DEXTROMETHORPHAN HYDROBROMIDE
     Indication: Cough
     Dosage: 10 ML, AS NEEDED (15 MG/5 ML SYRUP, TAKE 10 ML (30 MG) BY MOUTH 4 (4) TIMES A DAY
     Route: 048
  6. MUCINEX [Concomitant]
     Active Substance: GUAIFENESIN
     Dosage: 12 HR TABLET, TAKE 1 TABLET (600 MG) 2 TIMES A DAY. DO NOT CRUSH, CHEW OR SPLIT
     Route: 048
  7. ROSUVASTATIN CALCIUM [Concomitant]
     Active Substance: ROSUVASTATIN CALCIUM
     Indication: Dyslipidaemia
     Dosage: UNK (TAKE BY MOUTH)
     Route: 048
  8. VENTOLIN HFA [Concomitant]
     Active Substance: ALBUTEROL SULFATE
     Dosage: UNK, AS NEEDED (INHALE IF NEEDED)
  9. DESYREL [Concomitant]
     Active Substance: TRAZODONE HYDROCHLORIDE
     Dosage: 50 MG, EVERY NIGHT
     Route: 048

REACTIONS (5)
  - Neoplasm progression [Fatal]
  - Blood test abnormal [Unknown]
  - Drug level fluctuating [Unknown]
  - Off label use [Unknown]
  - Drug effective for unapproved indication [Unknown]
